FAERS Safety Report 23264613 (Version 1)
Quarter: 2023Q4

REPORT INFORMATION
  Report Type: Report from Study
  Country: CA (occurrence: CA)
  Receive Date: 20231205
  Receipt Date: 20231205
  Transmission Date: 20240110
  Serious: Yes (Hospitalization)
  Sender: FDA-Public Use
  Company Number: CA-ABBVIE-5520694

PATIENT
  Age: 58 Year
  Sex: Male

DRUGS (1)
  1. HUMIRA [Suspect]
     Active Substance: ADALIMUMAB
     Indication: Rheumatoid arthritis
     Route: 058
     Dates: end: 20230810

REACTIONS (4)
  - Rheumatoid arthritis [Recovered/Resolved with Sequelae]
  - Mobility decreased [Unknown]
  - Rheumatoid arthritis [Unknown]
  - Joint effusion [Unknown]

NARRATIVE: CASE EVENT DATE: 20230401
